FAERS Safety Report 24535400 (Version 3)
Quarter: 2024Q4

REPORT INFORMATION
  Report Type: Spontaneous
  Country: CA (occurrence: CA)
  Receive Date: 20241022
  Receipt Date: 20241216
  Transmission Date: 20250114
  Serious: Yes (Hospitalization)
  Sender: PFIZER
  Company Number: CA-PFIZER INC-202400090003

PATIENT
  Age: 47 Year
  Sex: Female

DRUGS (1)
  1. ABRILADA [Suspect]
     Active Substance: ADALIMUMAB-AFZB
     Indication: Crohn^s disease
     Dosage: 1 DF 160 MG AT WEEK 0, 80 MG AT WEEK 2 AND 40MG EVERY OTHER WEEK BEGINNING AT WEEK 4
     Route: 058
     Dates: start: 20240415

REACTIONS (8)
  - Abdominal pain [Unknown]
  - Vomiting projectile [Unknown]
  - Vomiting [Unknown]
  - Intestinal obstruction [Unknown]
  - Injection site pain [Recovered/Resolved]
  - Abdominal discomfort [Recovering/Resolving]
  - Fatigue [Unknown]
  - Bowel movement irregularity [Unknown]

NARRATIVE: CASE EVENT DATE: 20240101
